FAERS Safety Report 6566332-6 (Version None)
Quarter: 2010Q1

REPORT INFORMATION
  Report Type: 
  Country: None (occurrence: None)
  Receive Date: 20100127
  Receipt Date: 20100115
  Transmission Date: 20100710
  Serious: Yes (Hospitalization)
  Sender: FDA-Public Use
  Company Number: 232404K07USA

PATIENT
  Age: 52 Year
  Sex: Female
  Weight: 77 kg

DRUGS (12)
  1. REBIF [Suspect]
     Indication: MULTIPLE SCLEROSIS
     Dosage: 44 MCG, 3 IN 1 WEEKS, SUBCUTANEOUS
     Route: 058
     Dates: start: 20030819
  2. SOLU-MEDROL [Concomitant]
  3. ATENOLOL [Concomitant]
  4. NEXIUM [Concomitant]
  5. LOVASTATIN [Concomitant]
  6. REMERON [Concomitant]
  7. CALCIUM (CALCIUM-SANDOZ /00009901/) [Concomitant]
  8. ZOMIG [Concomitant]
  9. TYLENOL NUMBER THREE (PANADEINE CO) [Concomitant]
  10. NAPROSYN [Concomitant]
  11. MOTRIN [Concomitant]
  12. LISINOPRIL (LISINOPRIL DIHYDRATE) [Concomitant]

REACTIONS (6)
  - ELECTROCARDIOGRAM T WAVE INVERSION [None]
  - IMMOBILE [None]
  - INJECTION SITE REACTION [None]
  - MIGRAINE [None]
  - MUSCULOSKELETAL DISORDER [None]
  - URINARY TRACT INFECTION [None]
